FAERS Safety Report 10479935 (Version 1)
Quarter: 2014Q3

REPORT INFORMATION
  Report Type: Spontaneous
  Country: CA (occurrence: CA)
  Receive Date: 20140929
  Receipt Date: 20140929
  Transmission Date: 20150326
  Serious: Yes (Other)
  Sender: FDA-Public Use
  Company Number: CA-ACCORD-026015

PATIENT

DRUGS (1)
  1. LETROZOLE. [Suspect]
     Active Substance: LETROZOLE
     Indication: OVULATION DISORDER
     Dosage: DOSAGE: 3X2.5MG

REACTIONS (3)
  - Renal pain [Unknown]
  - Off label use [Unknown]
  - Chromaturia [Unknown]
